FAERS Safety Report 13589440 (Version 1)
Quarter: 2017Q2

REPORT INFORMATION
  Report Type: Spontaneous
  Country: RU (occurrence: RU)
  Receive Date: 20170530
  Receipt Date: 20170530
  Transmission Date: 20170830
  Serious: Yes (Hospitalization)
  Sender: FDA-Public Use
  Company Number: RU-ASTRAZENECA-2017SE55840

PATIENT
  Age: 76 Year
  Sex: Female
  Weight: 70 kg

DRUGS (7)
  1. DIUVER [Concomitant]
     Active Substance: TORSEMIDE
  2. ASPIRIN. [Concomitant]
     Active Substance: ASPIRIN
  3. BRILINTA [Suspect]
     Active Substance: TICAGRELOR
     Indication: MYOCARDIAL INFARCTION
     Route: 048
     Dates: start: 201612
  4. NOLPAZA [Concomitant]
     Active Substance: PANTOPRAZOLE SODIUM
  5. ATORIS [Concomitant]
     Active Substance: ATORVASTATIN CALCIUM
  6. BISOPROLOL [Concomitant]
     Active Substance: BISOPROLOL
  7. PRESTARIUM [Concomitant]
     Active Substance: PERINDOPRIL

REACTIONS (2)
  - Blood pressure increased [Recovered/Resolved]
  - Dyspnoea [Not Recovered/Not Resolved]

NARRATIVE: CASE EVENT DATE: 201703
